FAERS Safety Report 10907526 (Version 1)
Quarter: 2015Q1

REPORT INFORMATION
  Report Type: Spontaneous
  Country: US (occurrence: None)
  Receive Date: 20150309
  Receipt Date: 20150309
  Transmission Date: 20150721
  Serious: No
  Sender: FDA-Public Use
  Company Number: None

PATIENT
  Age: 62 Year
  Sex: Male
  Weight: 77.11 kg

DRUGS (11)
  1. VALACYCLOVIR [Concomitant]
     Active Substance: VALACYCLOVIR HYDROCHLORIDE
  2. SUPER COLLAGEN +C [Concomitant]
  3. CENTRUM SILVER [Concomitant]
     Active Substance: VITAMINS
  4. TRAMADOL [Concomitant]
     Active Substance: TRAMADOL
  5. ORACEA [Concomitant]
     Active Substance: DOXYCYCLINE
  6. RHODIOLA EXTRACT [Concomitant]
  7. ZANTAC [Concomitant]
     Active Substance: RANITIDINE HYDROCHLORIDE
  8. GABAPENTIN. [Suspect]
     Active Substance: GABAPENTIN
     Indication: BACK PAIN
     Dosage: X1-3 DAYS, X2 - 3 DAYS, X3
     Route: 048
     Dates: start: 20141126, end: 20141210
  9. TURMERIC SPORT [Concomitant]
  10. PHILLIPS COLON HEALTH PROBIOTIC [Concomitant]
     Active Substance: PROBIOTICS NOS
  11. VIT. D [Concomitant]

REACTIONS (3)
  - Genital rash [None]
  - Skin discolouration [None]
  - Rash [None]

NARRATIVE: CASE EVENT DATE: 20141126
